FAERS Safety Report 25210982 (Version 1)
Quarter: 2025Q2

REPORT INFORMATION
  Report Type: Spontaneous
  Country: US (occurrence: US)
  Receive Date: 20250417
  Receipt Date: 20250417
  Transmission Date: 20250717
  Serious: Yes (Other)
  Sender: CALLIDITAS THERAPEUTICS AB
  Company Number: US-Calliditas-2025CAL01007

PATIENT
  Age: 43 Year
  Sex: Male

DRUGS (4)
  1. TARPEYO [Suspect]
     Active Substance: BUDESONIDE
     Indication: IgA nephropathy
     Route: 048
     Dates: start: 20240813
  2. LISINOPRIL [Concomitant]
     Active Substance: LISINOPRIL
  3. LOSARTAN [Concomitant]
     Active Substance: LOSARTAN
  4. CLOBETASOL [Concomitant]
     Active Substance: CLOBETASOL

REACTIONS (2)
  - Blood creatinine increased [Unknown]
  - Chronic kidney disease [Unknown]
